FAERS Safety Report 8970514 (Version 3)
Quarter: 2013Q1

REPORT INFORMATION
  Report Type: Spontaneous
  Country: US (occurrence: US)
  Receive Date: 20121217
  Receipt Date: 20130130
  Transmission Date: 20140127
  Serious: Yes (Hospitalization)
  Sender: FDA-Public Use
  Company Number: US-MERCK-1212USA004974

PATIENT
  Age: 41 Year
  Sex: Male

DRUGS (10)
  1. MIRTAZAPINE [Suspect]
     Dosage: 15 MG, UNK
     Dates: start: 20111110
  2. TRAZODONE HYDROCHLORIDE [Interacting]
     Indication: INSOMNIA
     Dosage: 200 MG, HS
  3. TRAZODONE HYDROCHLORIDE [Interacting]
     Dosage: 100 MG, HS
  4. ALBUTEROL [Concomitant]
  5. ASPIRIN [Concomitant]
  6. ISOSORBIDE MONONITRATE [Concomitant]
  7. VITAMINS (UNSPECIFIED) [Concomitant]
  8. NITROGLYCERIN [Concomitant]
     Dosage: UNK, PRN
  9. NEURONTIN [Concomitant]
  10. TRAMADOL HYDROCHLORIDE [Concomitant]

REACTIONS (1)
  - Drug interaction [Recovered/Resolved]
